FAERS Safety Report 4381990-2 (Version None)
Quarter: 2004Q2

REPORT INFORMATION
  Report Type: 
  Country: None (occurrence: None)
  Receive Date: 20040603
  Receipt Date: 20030527
  Transmission Date: 20050107
  Serious: Yes (Hospitalization, Other)
  Sender: FDA-Public Use
  Company Number: 200314320US

PATIENT
  Age: 77 Year
  Sex: Female
  Weight: 60 kg

DRUGS (2)
  1. LOVENOX [Suspect]
     Indication: DEEP VENOUS THROMBOSIS PROPHYLAXIS
     Dosage: 60 MG Q12H
     Dates: start: 20030428, end: 20030505
  2. ANTIBIOTICS NOS [Concomitant]

REACTIONS (2)
  - HAEMATOMA [None]
  - RETROPERITONEAL HAEMORRHAGE [None]
